FAERS Safety Report 23362001 (Version 2)
Quarter: 2024Q1

REPORT INFORMATION
  Report Type: Report from Study
  Country: US (occurrence: US)
  Receive Date: 20240103
  Receipt Date: 20240202
  Transmission Date: 20240409
  Serious: Yes (Other)
  Sender: FDA-Public Use
  Company Number: US-PPDUS-2023ST005352

PATIENT
  Age: 80 Year
  Sex: Female

DRUGS (2)
  1. ORSERDU [Suspect]
     Active Substance: ELACESTRANT
     Indication: Product used for unknown indication
     Route: 048
     Dates: start: 20230802
  2. ORSERDU [Suspect]
     Active Substance: ELACESTRANT
     Dosage: 4 86MG TABLETS
     Route: 048
     Dates: start: 20231230

REACTIONS (2)
  - Foreign body in throat [Unknown]
  - Product use complaint [Unknown]

NARRATIVE: CASE EVENT DATE: 20231221
